FAERS Safety Report 6858715-1 (Version None)
Quarter: 2010Q3

REPORT INFORMATION
  Report Type: 
  Country: None (occurrence: None)
  Receive Date: 20100719
  Receipt Date: 20080207
  Transmission Date: 20110219
  Serious: No
  Sender: FDA-Public Use
  Company Number: US-PFIZER INC-2008014122

PATIENT
  Sex: Female

DRUGS (4)
  1. CHANTIX [Suspect]
     Indication: SMOKING CESSATION THERAPY
     Dates: end: 20080206
  2. ALL OTHER THERAPEUTIC PRODUCTS [Concomitant]
     Dates: start: 20080101
  3. SYNTHROID [Concomitant]
  4. MULTI-VITAMINS [Concomitant]

REACTIONS (6)
  - DIET REFUSAL [None]
  - DIZZINESS [None]
  - DRUG DOSE OMISSION [None]
  - INFLUENZA LIKE ILLNESS [None]
  - NAUSEA [None]
  - PHOBIA OF DRIVING [None]
